FAERS Safety Report 22629770 (Version 3)
Quarter: 2025Q1

REPORT INFORMATION
  Report Type: Spontaneous
  Country: US (occurrence: US)
  Receive Date: 20230622
  Receipt Date: 20250222
  Transmission Date: 20250409
  Serious: No
  Sender: SANOFI AVENTIS
  Company Number: US-SA-SAC20230621000040

PATIENT
  Age: 60 Year
  Sex: Female

DRUGS (31)
  1. DUPIXENT [Suspect]
     Active Substance: DUPILUMAB
     Dosage: 300 MG, QOW
     Route: 058
  2. FLUTICASONE [Concomitant]
     Active Substance: FLUTICASONE
  3. LEVOTHYROXINE [Concomitant]
     Active Substance: LEVOTHYROXINE
  4. LEVOTHYROXINE [Concomitant]
     Active Substance: LEVOTHYROXINE
  5. TRELEGY ELLIPTA [Concomitant]
     Active Substance: FLUTICASONE FUROATE\UMECLIDINIUM BROMIDE\VILANTEROL TRIFENATATE
  6. TYLENOL [Concomitant]
     Active Substance: ACETAMINOPHEN
  7. XOPENEX [Concomitant]
     Active Substance: LEVALBUTEROL HYDROCHLORIDE
  8. MIDODRINE [Concomitant]
     Active Substance: MIDODRINE
  9. PRENATAL PLUS IRON [Concomitant]
     Active Substance: .ALPHA.-TOCOPHEROL ACETATE, DL-\.BETA.-CAROTENE\ASCORBIC ACID\CALCIUM CARBONATE\CHOLECALCIFEROL\CUPR
  10. VOQUEZNA [Concomitant]
     Active Substance: VONOPRAZAN FUMARATE
  11. SINGULAIR [Concomitant]
     Active Substance: MONTELUKAST SODIUM
  12. XOPENEX HFA [Concomitant]
     Active Substance: LEVALBUTEROL TARTRATE
  13. CALCIUM\VITAMIN D [Concomitant]
     Active Substance: CALCIUM\VITAMIN D
  14. CYCLOBENZAPRINE [Concomitant]
     Active Substance: CYCLOBENZAPRINE
  15. GLUCOPHAGE [Concomitant]
     Active Substance: METFORMIN HYDROCHLORIDE
  16. BENZONATATE [Concomitant]
     Active Substance: BENZONATATE
  17. VITAMIN D NOS [Concomitant]
     Active Substance: CHOLECALCIFEROL\ERGOCALCIFEROL
  18. TEZSPIRE [Concomitant]
     Active Substance: TEZEPELUMAB-EKKO
  19. LASIX [Concomitant]
     Active Substance: FUROSEMIDE
  20. MOTRIN [Concomitant]
     Active Substance: IBUPROFEN
  21. VITAMIN D3 [Concomitant]
     Active Substance: CHOLECALCIFEROL
  22. BUPRENORPHINE [Concomitant]
     Active Substance: BUPRENORPHINE
  23. LUBIPROSTONE [Concomitant]
     Active Substance: LUBIPROSTONE
  24. ZOFRAN [Concomitant]
     Active Substance: ONDANSETRON HYDROCHLORIDE
  25. LOPRESSOR [Concomitant]
     Active Substance: METOPROLOL TARTRATE
  26. LYRICA [Concomitant]
     Active Substance: PREGABALIN
  27. OZEMPIC [Concomitant]
     Active Substance: SEMAGLUTIDE
  28. EFFEXOR [Concomitant]
     Active Substance: VENLAFAXINE HYDROCHLORIDE
  29. MACROBID [Concomitant]
     Active Substance: NITROFURANTOIN\NITROFURANTOIN MONOHYDRATE
  30. PEPCID [Concomitant]
     Active Substance: FAMOTIDINE
  31. AMITRIPTYLINE [Concomitant]
     Active Substance: AMITRIPTYLINE

REACTIONS (2)
  - Injection site pain [Unknown]
  - Arthralgia [Unknown]
